FAERS Safety Report 10607983 (Version 1)
Quarter: 2014Q4

REPORT INFORMATION
  Report Type: Spontaneous
  Country: US (occurrence: US)
  Receive Date: 20141125
  Receipt Date: 20141125
  Transmission Date: 20150529
  Serious: Yes (Other)
  Sender: FDA-Public Use
  Company Number: US-ASTRAZENECA-2014SE87744

PATIENT
  Age: 74 Year
  Sex: Female
  Weight: 49 kg

DRUGS (5)
  1. NEXIUM [Suspect]
     Active Substance: ESOMEPRAZOLE MAGNESIUM
     Indication: DYSPEPSIA
     Route: 048
     Dates: start: 2004, end: 20141116
  2. NEXIUM [Suspect]
     Active Substance: ESOMEPRAZOLE MAGNESIUM
     Indication: SJOGREN^S SYNDROME
     Route: 048
     Dates: start: 20141117
  3. NEXIUM [Suspect]
     Active Substance: ESOMEPRAZOLE MAGNESIUM
     Indication: SJOGREN^S SYNDROME
     Route: 048
     Dates: start: 2004, end: 20141116
  4. NEXIUM [Suspect]
     Active Substance: ESOMEPRAZOLE MAGNESIUM
     Indication: GASTROOESOPHAGEAL REFLUX DISEASE
     Route: 048
     Dates: start: 20141117
  5. PILOCARPINE [Concomitant]
     Active Substance: PILOCARPINE
     Indication: DRY MOUTH
     Route: 048
     Dates: start: 2004

REACTIONS (7)
  - Head injury [Unknown]
  - Contusion [Unknown]
  - Dyspepsia [Unknown]
  - Product use issue [Unknown]
  - Fall [Unknown]
  - Dysphagia [Unknown]
  - Drug dose omission [Unknown]

NARRATIVE: CASE EVENT DATE: 2004
